FAERS Safety Report 21454358 (Version 1)
Quarter: 2022Q4

REPORT INFORMATION
  Report Type: Spontaneous
  Country: US (occurrence: None)
  Receive Date: 20221013
  Receipt Date: 20221013
  Transmission Date: 20230113
  Serious: Yes (Death)
  Sender: FDA-Public Use
  Company Number: None

PATIENT
  Age: 87 Year
  Sex: Female
  Weight: 83.28 kg

DRUGS (19)
  1. IBRANCE [Suspect]
     Active Substance: PALBOCICLIB
     Indication: Breast cancer female
     Dosage: OTHER FREQUENCY : 21D ON 7D OFF;?
     Route: 048
  2. AMIODARONE [Concomitant]
     Active Substance: AMIODARONE
  3. CALCIUM [Concomitant]
     Active Substance: CALCIUM
  4. CLARITIN [Concomitant]
     Active Substance: LORATADINE
  5. CLOPIDOGREL [Concomitant]
     Active Substance: CLOPIDOGREL BISULFATE
  6. ELIQUIS [Concomitant]
     Active Substance: APIXABAN
  7. ENTRESTO [Concomitant]
     Active Substance: SACUBITRIL\VALSARTAN
  8. ERGOCALCIFEROL [Concomitant]
     Active Substance: ERGOCALCIFEROL
  9. FASLODEX [Concomitant]
     Active Substance: FULVESTRANT
  10. FLONASE [Concomitant]
     Active Substance: FLUTICASONE PROPIONATE
  11. FUROSEMIDE [Concomitant]
     Active Substance: FUROSEMIDE
  12. ACETAMINOPHEN\HYDROCODONE [Concomitant]
     Active Substance: ACETAMINOPHEN\HYDROCODONE
  13. JARDIANCE [Concomitant]
     Active Substance: EMPAGLIFLOZIN
  14. MAGOX [Concomitant]
  15. METOPROLOL [Concomitant]
     Active Substance: METOPROLOL
  16. PEPCID [Concomitant]
     Active Substance: FAMOTIDINE
  17. PROVENTIL [Concomitant]
     Active Substance: ALBUTEROL
  18. PULMICORT TURBUHALER [Concomitant]
     Active Substance: BUDESONIDE
  19. ROSUVASTATIN [Concomitant]
     Active Substance: ROSUVASTATIN

REACTIONS (1)
  - Death [None]

NARRATIVE: CASE EVENT DATE: 20220927
